FAERS Safety Report 8231671-X (Version None)
Quarter: 2012Q1

REPORT INFORMATION
  Report Type: 
  Country: None (occurrence: None)
  Receive Date: 20120323
  Receipt Date: 20120319
  Transmission Date: 20120608
  Serious: Yes (Other)
  Sender: FDA-Public Use
  Company Number: BR-PFIZER INC-2012016355

PATIENT
  Age: 43 Year
  Sex: Female
  Weight: 72 kg

DRUGS (7)
  1. VARENICLINE TARTRATE [Suspect]
     Dosage: TWO TABLETS DAILY
     Route: 048
  2. VARENICLINE TARTRATE [Suspect]
     Dosage: TWO TABLETS DAILY
     Route: 048
     Dates: start: 20120308, end: 20120301
  3. PHENOBARBITAL TAB [Concomitant]
     Indication: CONVULSION
     Dosage: 100 MG, 1X/DAY
     Dates: start: 20100101
  4. VARENICLINE TARTRATE [Suspect]
     Dosage: 1 MG, 2X/DAY
     Route: 048
     Dates: start: 20120301, end: 20120301
  5. CLONAZEPAM [Concomitant]
     Indication: PANIC DISORDER
     Dosage: 4 MG (TWO TABLETS OF 2MG), 1X/DAY
     Dates: start: 20111001
  6. CLONAZEPAM [Concomitant]
     Indication: ANXIETY
  7. VARENICLINE TARTRATE [Suspect]
     Indication: SMOKING CESSATION THERAPY
     Dosage: UNK
     Route: 048
     Dates: start: 20111101

REACTIONS (5)
  - DRUG INEFFECTIVE [None]
  - SOMNOLENCE [None]
  - HYPERTENSION [None]
  - FEELING ABNORMAL [None]
  - GAIT DISTURBANCE [None]
